FAERS Safety Report 7373926 (Version 5)
Quarter: 2013Q1

REPORT INFORMATION
  Report Type: Spontaneous
  Country: US (occurrence: US)
  Receive Date: 20100503
  Receipt Date: 20130213
  Transmission Date: 20140127
  Serious: Yes (Hospitalization)
  Sender: FDA-Public Use
  Company Number: US-BAYER-201020520NA

PATIENT
  Age: 43 Year
  Sex: Female
  Weight: 104 kg

DRUGS (18)
  1. YAZ [Suspect]
     Indication: PRODUCT USED FOR UNKNOWN INDICATION
     Dates: start: 200712, end: 20091226
  2. NAPROXEN [Concomitant]
  3. VITAMIN C [Concomitant]
  4. PROPOXYPHENE [Concomitant]
  5. ROPINIROLE [Concomitant]
  6. ZOLOFT [Concomitant]
  7. AMITRIPTYLINE [Concomitant]
  8. REQUIP [Concomitant]
     Dosage: UNK
  9. PREVACID [Concomitant]
  10. PAXIL [Concomitant]
  11. MULTIVITAMIN [Concomitant]
  12. SERTRALINE [Concomitant]
  13. LIPITOR [Concomitant]
     Dosage: 10 MG, UNK
     Route: 048
     Dates: start: 2005
  14. LISINOPRIL [Concomitant]
     Dosage: 5 MG, UNK
     Dates: start: 2005
  15. IBUPROFEN [Concomitant]
     Dosage: 800 MG, UNK
     Dates: start: 2007
  16. DILAUDID [Concomitant]
  17. OXYCODONE [Concomitant]
  18. TYLENOL ES [Concomitant]

REACTIONS (6)
  - Pancreatitis [None]
  - Pancreatitis [None]
  - Abdominal pain [None]
  - Nausea [None]
  - Vomiting [None]
  - Cholecystitis chronic [None]
